FAERS Safety Report 26077886 (Version 1)
Quarter: 2025Q4

REPORT INFORMATION
  Report Type: Spontaneous
  Country: US (occurrence: US)
  Receive Date: 20251122
  Receipt Date: 20251122
  Transmission Date: 20260118
  Serious: No
  Sender: MDD OPERATIONS
  Company Number: US-MDD US Operations-MDD202508-003155

PATIENT
  Age: 76 Year
  Sex: Male

DRUGS (3)
  1. ONAPGO [Suspect]
     Active Substance: APOMORPHINE HYDROCHLORIDE
     Indication: Parkinson^s disease
     Dosage: 1 MG PER HOUR FOR 16 HOURS
     Route: 058
     Dates: start: 20250813
  2. ONAPGO [Suspect]
     Active Substance: APOMORPHINE HYDROCHLORIDE
     Indication: Dyskinesia
     Dosage: STRENGTH: 98MG/20ML, INFUSE CONTENTS OF 1 CARTRIDGE FOR 16 HOURS OR LESS EACH DAY. CONTINUOUS DOSE (
     Dates: start: 202508
  3. ONAPGO [Suspect]
     Active Substance: APOMORPHINE HYDROCHLORIDE
     Indication: On and off phenomenon

REACTIONS (3)
  - Anxiety [Unknown]
  - Gait disturbance [Unknown]
  - Injection site bruising [Unknown]
